FAERS Safety Report 24445661 (Version 2)
Quarter: 2024Q4

REPORT INFORMATION
  Report Type: Spontaneous
  Country: US (occurrence: US)
  Receive Date: 20241016
  Receipt Date: 20241029
  Transmission Date: 20250114
  Serious: Yes (Hospitalization, Other)
  Sender: PFIZER
  Company Number: US-PFIZER INC-PV202400133594

PATIENT
  Age: 73 Year
  Sex: Female

DRUGS (1)
  1. IBRANCE [Suspect]
     Active Substance: PALBOCICLIB
     Dosage: UNK

REACTIONS (6)
  - Intestinal obstruction [Unknown]
  - Nausea [Recovering/Resolving]
  - Tremor [Recovering/Resolving]
  - Urinary tract infection [Unknown]
  - Blood potassium decreased [Unknown]
  - Dehydration [Unknown]
